FAERS Safety Report 17097824 (Version 1)
Quarter: 2019Q4

REPORT INFORMATION
  Report Type: Spontaneous
  Country: US (occurrence: US)
  Receive Date: 20191105
  Receipt Date: 20191105
  Transmission Date: 20200122
  Serious: Yes (Life-Threatening)
  Sender: FDA-Public Use
  Company Number: None

PATIENT
  Age: 69 Year
  Sex: Female
  Weight: 60.78 kg

DRUGS (6)
  1. TAB-A-VITE [Concomitant]
  2. MAGNESIUM OXIDE. [Concomitant]
     Active Substance: MAGNESIUM OXIDE
  3. SIROLIMUS 2MG [Suspect]
     Active Substance: SIROLIMUS
     Indication: IMMUNOSUPPRESSANT DRUG THERAPY
     Route: 048
     Dates: start: 20190719, end: 20190828
  4. AMLODIPINE [Concomitant]
     Active Substance: AMLODIPINE BESYLATE
  5. ENTECAVIR. [Concomitant]
     Active Substance: ENTECAVIR
  6. TACROLIMUS. [Concomitant]
     Active Substance: TACROLIMUS

REACTIONS (4)
  - Product substitution issue [None]
  - Blood cholesterol increased [None]
  - Insurance issue [None]
  - Therapy cessation [None]

NARRATIVE: CASE EVENT DATE: 20190816
